FAERS Safety Report 4281058-X (Version None)
Quarter: 2004Q1

REPORT INFORMATION
  Report Type: 
  Country: None (occurrence: None)
  Receive Date: 20040123
  Receipt Date: 20030603
  Transmission Date: 20041129
  Serious: Yes (Hospitalization)
  Sender: FDA-Public Use
  Company Number: HQWYE461504JUN03

PATIENT
  Age: 56 Year
  Sex: Female
  Weight: 116 kg

DRUGS (8)
  1. CORDARONE [Suspect]
     Indication: ATRIAL FIBRILLATION
     Dosage: ORAL
     Route: 048
     Dates: end: 20030603
  2. TOPRAL (SULTOPRIDE) [Concomitant]
  3. ZOCOR [Concomitant]
  4. COUMADIN [Concomitant]
  5. POTASSIUM (POTASSIUM) [Concomitant]
  6. PRINIVIL [Concomitant]
  7. ASPIRIN [Concomitant]
  8. SYNTHROID [Concomitant]

REACTIONS (2)
  - ABDOMINAL PAIN [None]
  - PANCREATITIS [None]
